FAERS Safety Report 21478123 (Version 2)
Quarter: 2022Q4

REPORT INFORMATION
  Report Type: Spontaneous
  Country: JP (occurrence: JP)
  Receive Date: 20221019
  Receipt Date: 20221121
  Transmission Date: 20230112
  Serious: Yes (Other)
  Sender: FDA-Public Use
  Company Number: JP-MSD-M2022-38194

PATIENT
  Age: 67 Year
  Sex: Female

DRUGS (3)
  1. LAGEVRIO [Suspect]
     Active Substance: MOLNUPIRAVIR
     Indication: COVID-19 treatment
     Dosage: 800 MILLIGRAM, BID
     Route: 048
     Dates: start: 20220801, end: 20220805
  2. ZINC [Suspect]
     Active Substance: ZINC
     Dosage: 7 UNK
     Route: 048
     Dates: end: 20220907
  3. POLAPREZINC [Suspect]
     Active Substance: POLAPREZINC
     Dosage: 75 MILLIGRAM, BID
     Route: 048
     Dates: start: 20211202, end: 20220907

REACTIONS (1)
  - Pancytopenia [Recovering/Resolving]

NARRATIVE: CASE EVENT DATE: 20220816
